FAERS Safety Report 7284077-4 (Version None)
Quarter: 2011Q1

REPORT INFORMATION
  Report Type: 
  Country: None (occurrence: None)
  Receive Date: 20110209
  Receipt Date: 20110126
  Transmission Date: 20110831
  Serious: Yes (Hospitalization)
  Sender: FDA-Public Use
  Company Number: IT-CELGENEUS-083-21880-11012719

PATIENT
  Sex: Female

DRUGS (8)
  1. REVLIMID [Suspect]
     Indication: MULTIPLE MYELOMA
     Route: 048
     Dates: start: 20100201, end: 20101130
  2. SOLDESAM [Concomitant]
     Route: 048
  3. LIMPIDEX [Concomitant]
     Route: 065
  4. MIRAPEXIN [Concomitant]
     Route: 065
  5. COUMADIN [Suspect]
     Indication: COAGULOPATHY
     Route: 048
     Dates: start: 20100201, end: 20101130
  6. MADOPAR [Concomitant]
     Dosage: 100 +25MG
     Route: 065
  7. LASIX [Concomitant]
     Route: 065
  8. OSSEOR [Concomitant]
     Route: 065

REACTIONS (2)
  - RECTAL HAEMORRHAGE [None]
  - HAEMORRHOIDS [None]
